FAERS Safety Report 7474420-5 (Version None)
Quarter: 2011Q2

REPORT INFORMATION
  Report Type: 
  Country: None (occurrence: None)
  Receive Date: 20110512
  Receipt Date: 20110406
  Transmission Date: 20111010
  Serious: No
  Sender: FDA-Public Use
  Company Number: US-BAYER-2011-030543

PATIENT
  Age: 46 Year
  Sex: Female

DRUGS (3)
  1. LEXAPRO [Concomitant]
  2. AVELOX [Suspect]
     Indication: PRODUCT USED FOR UNKNOWN INDICATION
     Route: 048
  3. MELPHALAN HYDROCHLORIDE [Concomitant]

REACTIONS (1)
  - PLANTAR FASCIITIS [None]
